FAERS Safety Report 10062279 (Version 1)
Quarter: 2014Q2

REPORT INFORMATION
  Report Type: Spontaneous
  Country: US (occurrence: US)
  Receive Date: 20140407
  Receipt Date: 20140407
  Transmission Date: 20141212
  Serious: No
  Sender: FDA-Public Use
  Company Number: US-GLAXOSMITHKLINE-A1053217A

PATIENT
  Age: 53 Year
  Sex: Female

DRUGS (12)
  1. BENLYSTA [Suspect]
     Indication: SYSTEMIC LUPUS ERYTHEMATOSUS
     Route: 042
     Dates: start: 201102
  2. METHYLPREDNISOLONE [Concomitant]
  3. METHOTREXATE [Concomitant]
  4. LEUCOVORIN [Concomitant]
  5. ATENOLOL [Concomitant]
  6. FENOFIBRATE [Concomitant]
  7. HYDROXYCHLOROQUINE [Concomitant]
  8. SERTRALINE [Concomitant]
  9. ASPIRIN [Concomitant]
  10. WARFARIN [Concomitant]
  11. HCTZ [Concomitant]
  12. GENTAMYCIN [Concomitant]

REACTIONS (3)
  - Impaired healing [Not Recovered/Not Resolved]
  - Calcinosis [Unknown]
  - Debridement [Unknown]
